FAERS Safety Report 24462068 (Version 1)
Quarter: 2024Q4

REPORT INFORMATION
  Report Type: Spontaneous
  Country: PK (occurrence: PK)
  Receive Date: 20241018
  Receipt Date: 20241018
  Transmission Date: 20250114
  Serious: No
  Sender: ROCHE
  Company Number: PK-ROCHE-3575824

PATIENT
  Age: 51 Year
  Sex: Male
  Weight: 75.0 kg

DRUGS (1)
  1. RITUXIMAB [Suspect]
     Active Substance: RITUXIMAB
     Indication: Diffuse large B-cell lymphoma
     Dosage: BATCH NUMBER WAS REQUESTED AND NOT AVAILABLE WITH THE REPORTER ;ONGOING: YES
     Route: 058
     Dates: start: 20240527

REACTIONS (3)
  - Pyrexia [Unknown]
  - Diarrhoea [Unknown]
  - Asthenia [Unknown]
